FAERS Safety Report 6729825-4 (Version None)
Quarter: 2010Q2

REPORT INFORMATION
  Report Type: 
  Country: None (occurrence: None)
  Receive Date: 20100513
  Receipt Date: 20080907
  Transmission Date: 20101027
  Serious: No
  Sender: FDA-Public Use
  Company Number: 2008-00104

PATIENT
  Age: 57 Year
  Sex: Female
  Weight: 65.7716 kg

DRUGS (3)
  1. ZICAM COLD REMEDY NASAL GEL [Suspect]
     Dosage: 1 DOSE
     Dates: start: 20080711
  2. LISINOPRIL [Concomitant]
  3. NEXIUM [Concomitant]

REACTIONS (6)
  - AGEUSIA [None]
  - ANOSMIA [None]
  - NASAL DISCOMFORT [None]
  - OROPHARYNGEAL PAIN [None]
  - RHINALGIA [None]
  - THROAT IRRITATION [None]
